FAERS Safety Report 22346472 (Version 1)
Quarter: 2023Q2

REPORT INFORMATION
  Report Type: Spontaneous
  Country: DE (occurrence: DE)
  Receive Date: 20230519
  Receipt Date: 20230519
  Transmission Date: 20230721
  Serious: Yes (Hospitalization)
  Sender: FDA-Public Use
  Company Number: DE-DCGMA-23200861

PATIENT
  Age: 57 Year
  Sex: Female
  Weight: 48 kg

DRUGS (4)
  1. CARBOPLATIN [Suspect]
     Active Substance: CARBOPLATIN
     Indication: Lung neoplasm malignant
     Dosage: CONDITION AFTER 4TH CYCLE
     Dates: start: 202208, end: 202210
  2. PEMETREXED [Suspect]
     Active Substance: PEMETREXED
     Indication: Lung neoplasm malignant
     Dosage: CONDITION AFTER 4TH CYCLE
     Dates: start: 202208, end: 202210
  3. PEMBROLIZUMAB [Suspect]
     Active Substance: PEMBROLIZUMAB
     Indication: Product used for unknown indication
     Dosage: CONDITION AFTER 2ND CYCLE OF IMMUNOTHERAPY
     Dates: start: 202211, end: 202301
  4. PEMBROLIZUMAB [Suspect]
     Active Substance: PEMBROLIZUMAB
     Dosage: CONDITION AFTER 4TH CYCLE
     Dates: start: 202208, end: 202210

REACTIONS (1)
  - Addison^s disease [Recovering/Resolving]

NARRATIVE: CASE EVENT DATE: 20230201
